FAERS Safety Report 4307475-7 (Version None)
Quarter: 2004Q1

REPORT INFORMATION
  Report Type: 
  Country: None (occurrence: None)
  Receive Date: 20040226
  Receipt Date: 20040217
  Transmission Date: 20041129
  Serious: Yes (Hospitalization)
  Sender: FDA-Public Use
  Company Number: 200410056BVD

PATIENT
  Age: 63 Year
  Sex: Female

DRUGS (1)
  1. AVELOX [Suspect]
     Indication: CHRONIC OBSTRUCTIVE AIRWAYS DISEASE EXACERBATED
     Dosage: 400 MG, TOTAL DAILY, ORAL
     Route: 048
     Dates: start: 20031118, end: 20031130

REACTIONS (2)
  - GENERAL PHYSICAL HEALTH DETERIORATION [None]
  - HEPATIC STEATOSIS [None]
